FAERS Safety Report 9223204 (Version 3)
Quarter: 2013Q2

REPORT INFORMATION
  Report Type: Spontaneous
  Country: JP (occurrence: JP)
  Receive Date: 20130410
  Receipt Date: 20130524
  Transmission Date: 20140414
  Serious: Yes (Hospitalization, Other)
  Sender: FDA-Public Use
  Company Number: JP-009507513-1304JPN002734

PATIENT
  Age: 65 Year
  Sex: Female
  Weight: 37 kg

DRUGS (5)
  1. REMERON [Suspect]
     Indication: DEPRESSED MOOD
     Dosage: 15 MG, QD
     Route: 048
     Dates: start: 20121030, end: 20121126
  2. UNDEPRE [Suspect]
     Indication: ANXIETY
     Dosage: 25 MG, TID
     Route: 048
     Dates: start: 20121126, end: 20130130
  3. CYMBALTA [Suspect]
     Indication: DEPRESSED MOOD
     Dosage: 20 MG, BID
     Route: 048
     Dates: start: 20121030, end: 20130217
  4. LEXAPRO [Suspect]
     Indication: DEPRESSED MOOD
     Dosage: 10 MG, QD
     Route: 048
     Dates: start: 20121126, end: 20130204
  5. SULPIRIDE [Concomitant]
     Indication: DECREASED APPETITE
     Dosage: 50 MG, TID
     Route: 048
     Dates: start: 20130410, end: 20130516

REACTIONS (7)
  - Fall [Recovering/Resolving]
  - Skull fracture [Recovering/Resolving]
  - Extradural haematoma [Recovering/Resolving]
  - Pneumocephalus [Recovering/Resolving]
  - Pancytopenia [Recovering/Resolving]
  - Delirium [Recovered/Resolved]
  - White blood cell count decreased [Recovering/Resolving]
